APPROVED DRUG PRODUCT: OLINVYK
Active Ingredient: OLICERIDINE
Strength: 30MG/30ML (1MG/ML)
Dosage Form/Route: SOLUTION;INTRAVENOUS
Application: N210730 | Product #003
Applicant: TREVENA INC
Approved: Oct 30, 2020 | RLD: Yes | RS: No | Type: DISCN

PATENTS:
Patent 11931350 | Expires: Mar 23, 2032
Patent 9642842 | Expires: Mar 23, 2032
Patent 8835488 | Expires: Mar 23, 2032
Patent 9309234 | Expires: Mar 23, 2032
Patent 11077098 | Expires: Mar 23, 2032